FAERS Safety Report 17362416 (Version 1)
Quarter: 2020Q1

REPORT INFORMATION
  Report Type: Spontaneous
  Country: US (occurrence: US)
  Receive Date: 20200201
  Receipt Date: 20200201
  Transmission Date: 20200409
  Serious: No
  Sender: FDA-Public Use
  Company Number: None

PATIENT
  Age: 67 Year
  Sex: Female
  Weight: 59.85 kg

DRUGS (7)
  1. HYDROCHLOROTHIAZIDE CLOBATOSOL [Concomitant]
  2. BABY ASPIRIN [Concomitant]
     Active Substance: ASPIRIN
  3. CLOBATOSOL [Suspect]
     Active Substance: CLOBETASOL PROPIONATE
     Indication: LICHEN SCLEROSUS
     Route: 067
  4. LISINOPRIL. [Concomitant]
     Active Substance: LISINOPRIL
  5. VITAMIN D [Concomitant]
     Active Substance: VITAMIN D NOS
  6. PROBIOTIC [Concomitant]
     Active Substance: PROBIOTICS NOS
  7. GABAPENTIN. [Concomitant]
     Active Substance: GABAPENTIN

REACTIONS (5)
  - Pruritus [None]
  - Erythema [None]
  - Rash [None]
  - Swelling [None]
  - Skin burning sensation [None]

NARRATIVE: CASE EVENT DATE: 20200103
